FAERS Safety Report 6688821-6 (Version None)
Quarter: 2010Q2

REPORT INFORMATION
  Report Type: 
  Country: None (occurrence: None)
  Receive Date: 20100420
  Receipt Date: 20091110
  Transmission Date: 20101027
  Serious: Yes (Hospitalization, Other)
  Sender: FDA-Public Use
  Company Number: GB-BAXTER-2010BH009745

PATIENT
  Age: 2 Year
  Sex: Male
  Weight: 16 kg

DRUGS (4)
  1. HEPARIN SODIUM 1,000 UNITS AND SODIUM CHLORIDE 0.9% [Suspect]
     Indication: ANTICOAGULANT THERAPY
     Route: 042
     Dates: start: 20090923, end: 20090923
  2. ANAESTHETICS [Concomitant]
     Indication: INFUSION
     Route: 065
  3. MELPHALAN HYDROCHLORIDE [Concomitant]
     Indication: DRUG USE FOR UNKNOWN INDICATION
     Route: 065
  4. OMNIPAQUE ^SCHERING^ [Concomitant]
     Indication: ANGIOGRAM
     Route: 065

REACTIONS (3)
  - BRONCHOSPASM [None]
  - HYPOTENSION [None]
  - URTICARIA [None]
